FAERS Safety Report 8136477-8 (Version None)
Quarter: 2012Q1

REPORT INFORMATION
  Report Type: 
  Country: None (occurrence: None)
  Receive Date: 20120214
  Receipt Date: 20120204
  Transmission Date: 20120608
  Serious: Yes (Death, Hospitalization)
  Sender: FDA-Public Use
  Company Number: IN-ELI_LILLY_AND_COMPANY-IN201202001531

PATIENT
  Age: 70 Year
  Sex: Male

DRUGS (3)
  1. VITAMINS NOS [Concomitant]
  2. FORTEO [Suspect]
     Indication: OSTEOPOROSIS
     Dosage: 20 UG, QD
     Route: 058
     Dates: start: 20110601
  3. CALCIUM [Concomitant]

REACTIONS (3)
  - ROAD TRAFFIC ACCIDENT [None]
  - MULTIPLE FRACTURES [None]
  - CARDIAC ARREST [None]
